FAERS Safety Report 10956028 (Version 2)
Quarter: 2015Q2

REPORT INFORMATION
  Report Type: Spontaneous
  Country: US (occurrence: US)
  Receive Date: 20150326
  Receipt Date: 20150526
  Transmission Date: 20150821
  Serious: No
  Sender: FDA-Public Use
  Company Number: US-JNJFOC-20130508544

PATIENT
  Age: 57 Year
  Sex: Male
  Weight: 76.2 kg

DRUGS (8)
  1. ZYPREXA [Concomitant]
     Active Substance: OLANZAPINE
     Indication: IMMUNE SYSTEM DISORDER
     Route: 048
  2. LEXAPRO [Concomitant]
     Active Substance: ESCITALOPRAM OXALATE
     Indication: ANTIDEPRESSANT THERAPY
     Route: 048
  3. NORVIR [Concomitant]
     Active Substance: RITONAVIR
     Indication: IMMUNE SYSTEM DISORDER
     Route: 048
  4. ABILIFY [Concomitant]
     Active Substance: ARIPIPRAZOLE
     Indication: ANTIDEPRESSANT THERAPY
     Route: 048
  5. TRUVADA [Concomitant]
     Active Substance: EMTRICITABINE\TENOFOVIR DISOPROXIL FUMARATE
     Indication: IMMUNE SYSTEM DISORDER
     Route: 048
  6. VYVANSE [Concomitant]
     Active Substance: LISDEXAMFETAMINE DIMESYLATE
     Route: 048
  7. PREZISTA [Concomitant]
     Active Substance: DARUNAVIR ETHANOLATE
     Indication: IMMUNE SYSTEM DISORDER
     Route: 048
  8. INTELENCE [Suspect]
     Active Substance: ETRAVIRINE
     Indication: IMMUNE SYSTEM DISORDER
     Route: 048
     Dates: start: 201304

REACTIONS (3)
  - Product size issue [Unknown]
  - Choking [Recovered/Resolved]
  - Product contamination physical [Unknown]

NARRATIVE: CASE EVENT DATE: 201304
